FAERS Safety Report 10230799 (Version 2)
Quarter: 2014Q2

REPORT INFORMATION
  Report Type: Spontaneous
  Country: MX (occurrence: MX)
  Receive Date: 20140611
  Receipt Date: 20140611
  Transmission Date: 20141212
  Serious: Yes (Other)
  Sender: FDA-Public Use
  Company Number: MX-ELI_LILLY_AND_COMPANY-MX201401005163

PATIENT
  Age: 38 Year
  Sex: Female

DRUGS (1)
  1. HUMALOG 25% LISPRO, 75% NPL [Suspect]
     Indication: GESTATIONAL DIABETES
     Dosage: 1 DF, OTHER
     Route: 065
     Dates: end: 20140215

REACTIONS (3)
  - Maternal exposure during pregnancy [Recovered/Resolved]
  - Blood glucose increased [Unknown]
  - Suppressed lactation [Unknown]
